FAERS Safety Report 5498571-X (Version None)
Quarter: 2007Q4

REPORT INFORMATION
  Report Type: 
  Country: None (occurrence: None)
  Receive Date: 20071024
  Receipt Date: 20071024
  Transmission Date: 20080405
  Serious: Yes (Life-Threatening, Hospitalization)
  Sender: FDA-Public Use
  Company Number: None

PATIENT
  Age: 48 Year
  Sex: Male
  Weight: 65 kg

DRUGS (2)
  1. LAMICTAL [Suspect]
     Indication: BIPOLAR DISORDER
     Dosage: 50MG  BID  PO
     Route: 048
     Dates: start: 20070924, end: 20071012
  2. LAMICTAL [Suspect]
     Indication: BIPOLAR DISORDER
     Dosage: 25MG  HS  PO
     Route: 048
     Dates: start: 20070924, end: 20071012

REACTIONS (3)
  - DIARRHOEA [None]
  - MENTAL STATUS CHANGES [None]
  - RASH [None]
